FAERS Safety Report 14084350 (Version 1)
Quarter: 2017Q4

REPORT INFORMATION
  Report Type: Spontaneous
  Country: JP (occurrence: JP)
  Receive Date: 20171013
  Receipt Date: 20171013
  Transmission Date: 20180321
  Serious: Yes (Other)
  Sender: FDA-Public Use
  Company Number: PHJP2017JP029869

PATIENT
  Age: 87 Year
  Sex: Male

DRUGS (4)
  1. REVOLADE TAB [Suspect]
     Active Substance: ELTROMBOPAG
     Indication: IMMUNE THROMBOCYTOPENIC PURPURA
     Dosage: 20 MG, UNK
     Route: 048
  2. REVOLADE TAB [Suspect]
     Active Substance: ELTROMBOPAG
     Dosage: 37.5 MG, (EVERY WEEK) QW
     Route: 048
     Dates: start: 201708
  3. REVOLADE TAB [Suspect]
     Active Substance: ELTROMBOPAG
     Dosage: UNK MG, 37.5 MG AND 50 MG ALTERNATIVELY
     Route: 048
     Dates: start: 20170907
  4. REVOLADE TAB [Suspect]
     Active Substance: ELTROMBOPAG
     Dosage: 50 MG, UNK
     Route: 048

REACTIONS (7)
  - Dementia [Unknown]
  - Mental disorder [Recovering/Resolving]
  - Delusion [Recovering/Resolving]
  - Aggression [Unknown]
  - Head titubation [Recovered/Resolved]
  - Dizziness [Recovered/Resolved]
  - Drug ineffective [Recovered/Resolved]

NARRATIVE: CASE EVENT DATE: 201708
